FAERS Safety Report 23620151 (Version 1)
Quarter: 2024Q1

REPORT INFORMATION
  Report Type: Spontaneous
  Country: JP (occurrence: JP)
  Receive Date: 20240312
  Receipt Date: 20240312
  Transmission Date: 20240410
  Serious: Yes (Life-Threatening, Hospitalization, Other)
  Sender: FDA-Public Use
  Company Number: JP-SANDOZ-SDZ2024JP024954

PATIENT
  Age: 24 Year
  Sex: Male

DRUGS (1)
  1. QUETIAPINE [Suspect]
     Active Substance: QUETIAPINE
     Indication: Product used for unknown indication
     Dosage: 7550 MG
     Route: 048

REACTIONS (5)
  - Acute kidney injury [Unknown]
  - Compartment syndrome [Unknown]
  - Rhabdomyolysis [Unknown]
  - Toxicity to various agents [Unknown]
  - Overdose [Unknown]
